FAERS Safety Report 5615676-0 (Version None)
Quarter: 2008Q1

REPORT INFORMATION
  Report Type: 
  Country: None (occurrence: None)
  Receive Date: 20080206
  Receipt Date: 20080123
  Transmission Date: 20080703
  Serious: Yes (Hospitalization, Other)
  Sender: FDA-Public Use
  Company Number: US-MERCK-0711USA01867

PATIENT
  Age: 61 Year
  Sex: Male

DRUGS (2)
  1. FOSAMAX [Suspect]
     Indication: RHEUMATOID ARTHRITIS
     Route: 048
     Dates: start: 19980301, end: 20050601
  2. FOSAMAX [Suspect]
     Route: 048
     Dates: start: 19980301, end: 20050601

REACTIONS (12)
  - ACUTE SINUSITIS [None]
  - ASTHMA [None]
  - BACTERAEMIA [None]
  - CHRONIC OBSTRUCTIVE PULMONARY DISEASE [None]
  - COMMINUTED FRACTURE [None]
  - DIABETES MELLITUS [None]
  - INGUINAL HERNIA [None]
  - OSTEOMYELITIS [None]
  - OSTEONECROSIS [None]
  - RESPIRATORY DISTRESS [None]
  - SPINAL OSTEOARTHRITIS [None]
  - SUBMANDIBULAR MASS [None]
